FAERS Safety Report 16413199 (Version 2)
Quarter: 2019Q3

REPORT INFORMATION
  Report Type: Spontaneous
  Country: US (occurrence: US)
  Receive Date: 20190611
  Receipt Date: 20190701
  Transmission Date: 20191004
  Serious: Yes (Life-Threatening, Hospitalization, Other)
  Sender: FDA-Public Use
  Company Number: US-AUROBINDO-AUR-APL-2019-031844

PATIENT

DRUGS (6)
  1. CAPECITABINE. [Suspect]
     Active Substance: CAPECITABINE
     Indication: NEUROENDOCRINE CARCINOMA METASTATIC
  2. CAPECITABINE. [Suspect]
     Active Substance: CAPECITABINE
     Indication: METASTASES TO BREAST
     Dosage: 750 MILLIGRAM/SQ. METER, TWO TIMES A DAY (1-14)
     Route: 065
     Dates: start: 201401, end: 201605
  3. CAPECITABINE. [Suspect]
     Active Substance: CAPECITABINE
     Indication: METASTASES TO OVARY
  4. TEMOZOLOMIDE. [Suspect]
     Active Substance: TEMOZOLOMIDE
     Indication: METASTASES TO OVARY
  5. TEMOZOLOMIDE. [Suspect]
     Active Substance: TEMOZOLOMIDE
     Indication: METASTASES TO BREAST
     Dosage: 200 MILLIGRAM/SQ. METER, ONCE A DAY, 10-14 DAYS OF 28 DAY CYCLE
     Route: 065
     Dates: start: 201401, end: 201603
  6. TEMOZOLOMIDE. [Suspect]
     Active Substance: TEMOZOLOMIDE
     Indication: NEUROENDOCRINE CARCINOMA METASTATIC

REACTIONS (6)
  - Cytogenetic abnormality [Recovered/Resolved]
  - Influenza B virus test positive [Recovered/Resolved]
  - Fatigue [Recovered/Resolved]
  - Acute myeloid leukaemia [Recovered/Resolved]
  - Pyrexia [Recovered/Resolved]
  - Pancytopenia [Recovered/Resolved]

NARRATIVE: CASE EVENT DATE: 201605
